FAERS Safety Report 6108441-1 (Version None)
Quarter: 2009Q1

REPORT INFORMATION
  Report Type: 
  Country: None (occurrence: None)
  Receive Date: 20090309
  Receipt Date: 20090223
  Transmission Date: 20090719
  Serious: Yes (Hospitalization, Other)
  Sender: FDA-Public Use
  Company Number: IN-PFIZER INC-2009174709

PATIENT

DRUGS (1)
  1. PHENYTOIN AND PHENYTOIN SODIUM [Suspect]
     Dosage: 100 MG, 3X/DAY

REACTIONS (8)
  - ANOREXIA [None]
  - CONSTIPATION [None]
  - DYSPNOEA [None]
  - FATIGUE [None]
  - OEDEMA PERIPHERAL [None]
  - SWELLING FACE [None]
  - TUBULOINTERSTITIAL NEPHRITIS [None]
  - VOMITING [None]
